FAERS Safety Report 5064787-X (Version None)
Quarter: 2006Q2

REPORT INFORMATION
  Report Type: 
  Country: None (occurrence: None)
  Receive Date: 20060628
  Receipt Date: 20060614
  Transmission Date: 20061013
  Serious: Yes (Life-Threatening, Hospitalization)
  Sender: FDA-Public Use
  Company Number: PHEH2006US07865

PATIENT
  Sex: Female

DRUGS (1)
  1. TEGRETOL [Suspect]
     Indication: CONVULSION
     Dosage: UNK,UNK

REACTIONS (2)
  - ANTICONVULSANT DRUG LEVEL INCREASED [None]
  - COMA [None]
